FAERS Safety Report 7963799-3 (Version None)
Quarter: 2011Q4

REPORT INFORMATION
  Report Type: 
  Country: None (occurrence: None)
  Receive Date: 20111208
  Receipt Date: 20111111
  Transmission Date: 20120403
  Serious: No
  Sender: FDA-Public Use
  Company Number: US-BAYER-2011-110437

PATIENT
  Age: 87 Year
  Sex: Female
  Weight: 86 kg

DRUGS (5)
  1. SYNTHROID [Concomitant]
  2. ASPIRIN [Concomitant]
  3. ATENOLOL [Concomitant]
  4. OMEPRAZOLE [Concomitant]
  5. ALEVE (CAPLET) [Suspect]
     Indication: PAIN
     Dosage: 2 DF, BID
     Route: 048
     Dates: start: 20110412

REACTIONS (1)
  - NO ADVERSE EVENT [None]
